FAERS Safety Report 22094604 (Version 1)
Quarter: 2023Q1

REPORT INFORMATION
  Report Type: Report from Study
  Country: IL (occurrence: IL)
  Receive Date: 20230314
  Receipt Date: 20230314
  Transmission Date: 20230417
  Serious: Yes (Other)
  Sender: FDA-Public Use
  Company Number: IL-TEVAIL-2023-IL-2865917

PATIENT
  Age: 55 Year
  Sex: Female

DRUGS (2)
  1. MYCOPHENOLATE MOFETIL [Suspect]
     Active Substance: MYCOPHENOLATE MOFETIL
     Indication: Systemic scleroderma
     Dosage: 2 G
     Route: 065
  2. BNT162b2 mRNA vaccine [Concomitant]
     Indication: COVID-19 immunisation
     Dosage: 2  DF
     Route: 065

REACTIONS (1)
  - Humoral immune defect [Unknown]
